FAERS Safety Report 23632036 (Version 1)
Quarter: 2024Q1

REPORT INFORMATION
  Report Type: Spontaneous
  Country: US (occurrence: None)
  Receive Date: 20240313
  Receipt Date: 20240313
  Transmission Date: 20240409
  Serious: Yes (Death, Hospitalization)
  Sender: FDA-Public Use
  Company Number: None

PATIENT
  Age: 77 Year
  Sex: Male

DRUGS (1)
  1. PIRFENIDONE [Suspect]
     Active Substance: PIRFENIDONE
     Indication: Idiopathic pulmonary fibrosis
     Dosage: FREQUENCY : DAILY;?
     Route: 048
     Dates: start: 20230516, end: 20230630

REACTIONS (14)
  - Acute respiratory failure [None]
  - Haemoptysis [None]
  - Nausea [None]
  - Vomiting [None]
  - Constipation [None]
  - Influenza like illness [None]
  - Nosocomial infection [None]
  - Shock [None]
  - Pneumonia klebsiella [None]
  - Atrial fibrillation [None]
  - Loss of consciousness [None]
  - Pulmonary embolism [None]
  - Lung opacity [None]
  - Pleural effusion [None]

NARRATIVE: CASE EVENT DATE: 20030630
